FAERS Safety Report 8229326-0 (Version None)
Quarter: 2012Q1

REPORT INFORMATION
  Report Type: 
  Country: None (occurrence: None)
  Receive Date: 20120322
  Receipt Date: 20120316
  Transmission Date: 20120608
  Serious: Yes (Disabling, Other)
  Sender: FDA-Public Use
  Company Number: US-PFIZER INC-2012063614

PATIENT
  Sex: Female
  Weight: 143 kg

DRUGS (17)
  1. MAXZIDE [Concomitant]
     Indication: CARDIAC FAILURE CONGESTIVE
     Dosage: 50/75 MG
  2. PROTONIX [Suspect]
     Indication: GASTROOESOPHAGEAL REFLUX DISEASE
  3. FLEXERIL [Concomitant]
     Indication: OSTEOARTHRITIS
  4. FLEXERIL [Concomitant]
  5. FLEXERIL [Concomitant]
     Indication: FIBROMYALGIA
     Dosage: UNK
  6. VICODIN [Concomitant]
     Indication: OSTEOARTHRITIS
  7. LIPITOR [Suspect]
     Indication: BLOOD CHOLESTEROL INCREASED
     Dosage: UNK, DAILY
     Dates: end: 20120101
  8. GLUCOPHAGE XR [Concomitant]
     Indication: TYPE 2 DIABETES MELLITUS
     Dosage: 1000 MG, 2X/DAY
  9. VICODIN [Concomitant]
     Indication: FIBROMYALGIA
     Dosage: UNK
  10. VICODIN [Concomitant]
     Indication: RESTLESS LEGS SYNDROME
  11. VICODIN [Concomitant]
  12. PROTONIX [Suspect]
     Indication: GASTRITIS
     Dosage: 40 MG, DAILY
     Dates: end: 20120101
  13. BETAPACE [Concomitant]
     Indication: ATRIAL FIBRILLATION
     Dosage: 120 MG, 2X/DAY
  14. FLEXERIL [Concomitant]
     Indication: RESTLESS LEGS SYNDROME
  15. LANTUS [Concomitant]
     Indication: TYPE 2 DIABETES MELLITUS
     Dosage: 18 UNITS DAILY
  16. ZOLOFT [Suspect]
     Indication: ANTICIPATORY ANXIETY
     Dosage: 100 MG, DAILY
     Dates: start: 20110101
  17. MAXZIDE [Concomitant]
     Indication: MENIERE'S DISEASE

REACTIONS (2)
  - PAIN [None]
  - OSTEOARTHRITIS [None]
